FAERS Safety Report 9145502 (Version 1)
Quarter: 2013Q1

REPORT INFORMATION
  Report Type: Spontaneous
  Country: JP (occurrence: JP)
  Receive Date: 20130307
  Receipt Date: 20130307
  Transmission Date: 20140127
  Serious: Yes (Other)
  Sender: FDA-Public Use
  Company Number: JP-JNJFOC-20130300675

PATIENT
  Age: 3 Decade
  Sex: Male

DRUGS (2)
  1. REMICADE [Suspect]
     Indication: COLITIS ULCERATIVE
     Dosage: FIRST DOSE
     Route: 042
     Dates: start: 201210
  2. REMICADE [Suspect]
     Indication: COLITIS ULCERATIVE
     Dosage: FOURTH INFUSION
     Route: 042

REACTIONS (2)
  - Flushing [Recovered/Resolved]
  - Blood pressure decreased [Recovered/Resolved]
